FAERS Safety Report 25114257 (Version 2)
Quarter: 2025Q2

REPORT INFORMATION
  Report Type: Report from Study
  Country: BR (occurrence: BR)
  Receive Date: 20250324
  Receipt Date: 20250401
  Transmission Date: 20250716
  Serious: Yes (Other)
  Sender: NOVARTIS
  Company Number: BR-002147023-NVSC2023BR034007

PATIENT
  Age: 54 Year
  Sex: Female

DRUGS (4)
  1. KISQALI [Suspect]
     Active Substance: RIBOCICLIB
     Indication: Breast cancer
     Route: 065
  2. KISQALI [Suspect]
     Active Substance: RIBOCICLIB
     Route: 065
  3. KISQALI [Suspect]
     Active Substance: RIBOCICLIB
     Route: 065
  4. ANASTROZOLE [Suspect]
     Active Substance: ANASTROZOLE
     Indication: Product used for unknown indication
     Route: 065

REACTIONS (30)
  - Metastases to lung [Unknown]
  - Metastases to liver [Unknown]
  - Metastases to kidney [Unknown]
  - Breast cancer [Unknown]
  - Malignant neoplasm progression [Unknown]
  - Visual impairment [Unknown]
  - Viral infection [Unknown]
  - Confusional state [Recovered/Resolved]
  - Memory impairment [Unknown]
  - Decreased immune responsiveness [Recovering/Resolving]
  - Alopecia [Not Recovered/Not Resolved]
  - Headache [Unknown]
  - Influenza [Unknown]
  - Malaise [Unknown]
  - Pruritus [Unknown]
  - Pain [Not Recovered/Not Resolved]
  - Neoplasm progression [Unknown]
  - Breast enlargement [Not Recovered/Not Resolved]
  - Erythema [Not Recovered/Not Resolved]
  - Insomnia [Unknown]
  - Renal disorder [Recovered/Resolved]
  - Breast pain [Not Recovered/Not Resolved]
  - Chest discomfort [Not Recovered/Not Resolved]
  - Drug ineffective [Unknown]
  - Inappropriate schedule of product administration [Unknown]
  - Breast mass [Unknown]
  - Paraesthesia [Unknown]
  - Chest pain [Unknown]
  - Breast discomfort [Unknown]
  - Lung disorder [Recovered/Resolved]

NARRATIVE: CASE EVENT DATE: 20240301
